FAERS Safety Report 11933303 (Version 1)
Quarter: 2016Q1

REPORT INFORMATION
  Report Type: Spontaneous
  Country: US (occurrence: US)
  Receive Date: 20160121
  Receipt Date: 20160121
  Transmission Date: 20160526
  Serious: No
  Sender: FDA-Public Use
  Company Number: US-TEVA-602317USA

PATIENT
  Sex: Male
  Weight: 109.87 kg

DRUGS (1)
  1. METFORMIN [Suspect]
     Active Substance: METFORMIN HYDROCHLORIDE
     Indication: TYPE 2 DIABETES MELLITUS
     Dosage: 1500 MILLIGRAM DAILY;
     Route: 048

REACTIONS (4)
  - Diarrhoea [Unknown]
  - Somnolence [Unknown]
  - Pain [Unknown]
  - Abdominal distension [Unknown]
